FAERS Safety Report 9468666 (Version 2)
Quarter: 2013Q3

REPORT INFORMATION
  Report Type: Spontaneous
  Country: GB (occurrence: GB)
  Receive Date: 20130821
  Receipt Date: 20130821
  Transmission Date: 20140515
  Serious: Yes (Other)
  Sender: FDA-Public Use
  Company Number: GB-TEVA-417569ISR

PATIENT
  Age: 90 Year
  Sex: Female

DRUGS (6)
  1. AMOXICILLIN [Suspect]
     Dosage: 1500 MILLIGRAM DAILY;
     Route: 048
     Dates: start: 20100610, end: 20100617
  2. CO-AMOXICLAV [Suspect]
     Indication: NOSOCOMIAL INFECTION
     Dosage: 3.6 GRAM DAILY; 1000MG/200MG.   STAT DOSE ONLY RECEIVED
     Route: 041
     Dates: start: 20110504, end: 20110504
  3. CIPROFLOXACIN [Suspect]
     Indication: NOSOCOMIAL INFECTION
     Dosage: RECEIVED 7 DOSES THEN SWITCHED TO INTRAVENOUS.
     Route: 048
     Dates: start: 20110505, end: 20110508
  4. CIPROFLOXACIN [Suspect]
     Indication: NOSOCOMIAL INFECTION
     Dosage: 400MG/200ML. 4 DOSES BEFORE BEING SWITCHED BACK TO ORAL CIPROFLOXACIN.
     Route: 041
     Dates: start: 20110509, end: 20110511
  5. CIPROFLOXACIN [Suspect]
     Indication: NOSOCOMIAL INFECTION
     Dosage: 4 DOSES RECEIVED.
     Route: 048
     Dates: start: 20110512, end: 20110513
  6. OMEPRAZOLE [Concomitant]
     Dosage: ONGOING THERAPY. BEFORE AND THROUGHOUT ADMISSION

REACTIONS (6)
  - Clostridium difficile colitis [Recovering/Resolving]
  - Vomiting [Recovering/Resolving]
  - Pyrexia [Recovering/Resolving]
  - Abdominal distension [Recovering/Resolving]
  - Malaise [Recovering/Resolving]
  - Gastroenteritis norovirus [Unknown]
